FAERS Safety Report 24571352 (Version 2)
Quarter: 2024Q4

REPORT INFORMATION
  Report Type: Report from Study
  Country: CN (occurrence: CN)
  Receive Date: 20241101
  Receipt Date: 20241217
  Transmission Date: 20250115
  Serious: Yes (Hospitalization, Other)
  Sender: NOVARTIS
  Company Number: CN-002147023-NVSC2024CN208341

PATIENT
  Age: 37 Year
  Sex: Female
  Weight: 66.5 kg

DRUGS (7)
  1. COSENTYX [Suspect]
     Active Substance: SECUKINUMAB
     Indication: Psoriasis
     Dosage: 300 MG (FIVE TIMES)
     Route: 058
     Dates: start: 20230203
  2. COSENTYX [Suspect]
     Active Substance: SECUKINUMAB
     Dosage: 300 MG (FIVE TIMES)
     Route: 058
     Dates: start: 20230208
  3. COSENTYX [Suspect]
     Active Substance: SECUKINUMAB
     Dosage: 300 MG (FIVE TIMES)
     Route: 058
     Dates: start: 20230217
  4. COSENTYX [Suspect]
     Active Substance: SECUKINUMAB
     Dosage: 300 MG (FIVE TIMES)
     Route: 058
     Dates: start: 20230224
  5. COSENTYX [Suspect]
     Active Substance: SECUKINUMAB
     Dosage: 300 MG (FIVE TIMES)
     Route: 058
     Dates: start: 20230303
  6. COSENTYX [Suspect]
     Active Substance: SECUKINUMAB
     Dosage: 300 MG (FIVE TIMES)
     Route: 058
     Dates: start: 20230328
  7. VITAMIN E [Concomitant]
     Active Substance: .ALPHA.-TOCOPHEROL
     Indication: Product used for unknown indication
     Dosage: UNK
     Route: 065
     Dates: start: 20230217, end: 20230326

REACTIONS (7)
  - Pneumonia [Recovered/Resolved]
  - Chest pain [Recovered/Resolved]
  - Pancreatitis [Unknown]
  - Hepatic steatosis [Unknown]
  - Splenomegaly [Unknown]
  - Troponin I decreased [Unknown]
  - Nerve root injury [Unknown]

NARRATIVE: CASE EVENT DATE: 20230331
